FAERS Safety Report 20480955 (Version 1)
Quarter: 2022Q1

REPORT INFORMATION
  Report Type: Report from Study
  Country: US (occurrence: US)
  Receive Date: 20220216
  Receipt Date: 20220216
  Transmission Date: 20220423
  Serious: No
  Sender: FDA-Public Use
  Company Number: US-KYOWAKIRIN-2022BKK001570

PATIENT

DRUGS (2)
  1. CRYSVITA [Suspect]
     Active Substance: BUROSUMAB-TWZA
     Indication: Hereditary hypophosphataemic rickets
     Dosage: 20 MG (COMBINED WITH STRENGTH OF 30 MG/ML TO ACHIEVE A TOTAL DOSE OF 50 MG), EVERY 14 DAYS
     Route: 058
     Dates: start: 20180928, end: 2022
  2. CRYSVITA [Suspect]
     Active Substance: BUROSUMAB-TWZA
     Indication: Hereditary hypophosphataemic rickets
     Dosage: 30 MG (COMBINED WITH STRENGTH OF 20 MG/ML TO ACHIEVE A TOTAL DOSE OF 50 MG), EVERY 14 DAYS
     Route: 058
     Dates: start: 20180928, end: 2022

REACTIONS (1)
  - Inappropriate schedule of product administration [Unknown]

NARRATIVE: CASE EVENT DATE: 20220101
